FAERS Safety Report 8402480-3 (Version None)
Quarter: 2012Q2

REPORT INFORMATION
  Report Type: 
  Country: None (occurrence: None)
  Receive Date: 20120601
  Receipt Date: 20120530
  Transmission Date: 20120825
  Serious: Yes (Other)
  Sender: FDA-Public Use
  Company Number: US-ROCHE-784519

PATIENT
  Sex: Male
  Weight: 84.444 kg

DRUGS (2)
  1. ADDERALL 5 [Concomitant]
     Indication: ATTENTION DEFICIT/HYPERACTIVITY DISORDER
  2. ACCUTANE [Suspect]
     Indication: ACNE
     Route: 065
     Dates: start: 20000301, end: 20000801

REACTIONS (3)
  - COLITIS ULCERATIVE [None]
  - STRESS [None]
  - INFLAMMATORY BOWEL DISEASE [None]
